FAERS Safety Report 7570554-5 (Version None)
Quarter: 2011Q2

REPORT INFORMATION
  Report Type: 
  Country: None (occurrence: None)
  Receive Date: 20110622
  Receipt Date: 20110622
  Transmission Date: 20111010
  Serious: Yes (Hospitalization)
  Sender: FDA-Public Use
  Company Number: None

PATIENT
  Age: 82 Year
  Sex: Male
  Weight: 68.1 kg

DRUGS (1)
  1. HEPARIN [Suspect]
     Indication: DIALYSIS
     Dosage: OTHER
     Route: 050

REACTIONS (1)
  - THROMBOCYTOPENIA [None]
